FAERS Safety Report 9867042 (Version 1)
Quarter: 2014Q1

REPORT INFORMATION
  Report Type: Spontaneous
  Country: US (occurrence: None)
  Receive Date: 20140131
  Receipt Date: 20140131
  Transmission Date: 20141002
  Serious: Yes (Hospitalization)
  Sender: FDA-Public Use
  Company Number: US-ZYDUS-000028

PATIENT
  Age: 58 Year
  Sex: Male

DRUGS (1)
  1. AMIODARONE AMIODARONE [Suspect]
     Indication: VENTRICULAR TACHYCARDIA
     Dosage: 1600.00-MG-4.00?/ ORAL TIMES PER-1.0DAYS

REACTIONS (3)
  - Hyponatraemia [None]
  - Mental status changes [None]
  - Dialysis [None]
